FAERS Safety Report 6545466-6 (Version None)
Quarter: 2010Q1

REPORT INFORMATION
  Report Type: 
  Country: None (occurrence: None)
  Receive Date: 20100121
  Receipt Date: 20100113
  Transmission Date: 20100710
  Serious: Yes (Hospitalization)
  Sender: FDA-Public Use
  Company Number: JP-ABBOTT-08P-087-0473947-00

PATIENT
  Sex: Male
  Weight: 55 kg

DRUGS (12)
  1. KALETRA [Suspect]
     Indication: HIV INFECTION
     Dosage: 800/200 MG
     Route: 048
     Dates: start: 20080109, end: 20080202
  2. KALETRA [Suspect]
     Dosage: 800/200 MG
     Route: 048
     Dates: start: 20080213
  3. ZIDOVUDINE [Suspect]
     Indication: HIV INFECTION
     Route: 048
     Dates: start: 20080213
  4. EMTRICITABINE AND TENOFOVIR DISOPROXIL FUMARATE [Suspect]
     Indication: HIV INFECTION
     Route: 048
     Dates: start: 20080109, end: 20080202
  5. FLUNITRAZEPAM [Suspect]
     Indication: INSOMNIA
     Dosage: 1-2 MG QD
     Route: 048
     Dates: start: 20061113, end: 20080601
  6. CLONAZEPAM [Suspect]
     Indication: AFFECT LABILITY
     Dosage: 0.5-1.5MG 1-2 TIMES
     Route: 048
     Dates: start: 20070319, end: 20080803
  7. OLANZAPINE [Suspect]
     Indication: AFFECT LABILITY
     Route: 048
     Dates: start: 20071226, end: 20080120
  8. OLANZAPINE [Suspect]
     Route: 048
     Dates: start: 20080121, end: 20080212
  9. OLANZAPINE [Suspect]
     Route: 048
     Dates: start: 20080213, end: 20080306
  10. OLANZAPINE [Suspect]
     Route: 048
     Dates: start: 20080307, end: 20080427
  11. LAMIVUDINE [Concomitant]
     Indication: HIV INFECTION
     Route: 048
     Dates: start: 20080213
  12. PENTAMIDINE ISETHIONATE [Concomitant]
     Indication: ANTIFUNGAL PROPHYLAXIS
     Route: 055
     Dates: start: 20070829, end: 20080407

REACTIONS (5)
  - ABDOMINAL PAIN [None]
  - ANAEMIA [None]
  - ILEUS [None]
  - PERONEAL NERVE PALSY [None]
  - VOMITING [None]
